FAERS Safety Report 7700470-7 (Version None)
Quarter: 2011Q3

REPORT INFORMATION
  Report Type: 
  Country: None (occurrence: None)
  Receive Date: 20110817
  Receipt Date: 20110808
  Transmission Date: 20111222
  Serious: Yes (Other)
  Sender: FDA-Public Use
  Company Number: TCI2011A04386

PATIENT
  Age: 66 Year
  Sex: Male

DRUGS (1)
  1. ACTOS [Suspect]
     Indication: HYPERGLYCAEMIA
     Dosage: 15 MG (15 MG,1 D)
     Route: 048
     Dates: start: 20091116, end: 20100912

REACTIONS (2)
  - BLADDER NEOPLASM [None]
  - BLOOD URINE PRESENT [None]
